FAERS Safety Report 14365328 (Version 7)
Quarter: 2018Q3

REPORT INFORMATION
  Report Type: Spontaneous
  Country: GB (occurrence: GB)
  Receive Date: 20180108
  Receipt Date: 20180724
  Transmission Date: 20181010
  Serious: Yes (Other)
  Sender: FDA-Public Use
  Company Number: GB-BAUSCH-BL-2017-036375

PATIENT
  Age: 73 Year
  Sex: Female
  Weight: 48 kg

DRUGS (28)
  1. VELCADE [Suspect]
     Active Substance: BORTEZOMIB
     Dosage: DOSAGE FORM: LYOPHILIZED POWDER
     Route: 058
     Dates: start: 20171107, end: 201711
  2. VELCADE [Suspect]
     Active Substance: BORTEZOMIB
     Dosage: DOSAGE FORM: LYOPHILIZED POWDER
     Route: 058
     Dates: start: 20171110, end: 20171114
  3. DEXAMETHASONE. [Concomitant]
     Active Substance: DEXAMETHASONE
     Indication: PRODUCT USED FOR UNKNOWN INDICATION
     Dosage: DOSAGE FORM: UNSPECIFIED
     Route: 065
     Dates: start: 20171102, end: 20171106
  4. SODIUM CHLORIDE. [Suspect]
     Active Substance: SODIUM CHLORIDE
     Dosage: DAY 4 OF CYCLE 2, VMP REGIMEN, COMPOUNDED WITH BORTEZOMIB (1) ; CYCLICAL
     Route: 065
     Dates: start: 20171106, end: 20171106
  5. SODIUM CHLORIDE. [Suspect]
     Active Substance: SODIUM CHLORIDE
     Route: 041
     Dates: start: 20171107, end: 201711
  6. SODIUM CHLORIDE. [Suspect]
     Active Substance: SODIUM CHLORIDE
     Dosage: DAY 8 OF CYCLE 2, VMP REGIMEN, COMPOUNDED WITH BORTEZOMIB (1) ; CYCLICAL
     Route: 065
     Dates: start: 20171110, end: 20171110
  7. FENTANYL. [Suspect]
     Active Substance: FENTANYL
     Indication: PRODUCT USED FOR UNKNOWN INDICATION
     Dosage: FENTANYL PATCH
     Route: 062
     Dates: start: 20171108
  8. BENDROFLUMETHIAZIDE [Concomitant]
     Active Substance: BENDROFLUMETHIAZIDE
     Indication: PRODUCT USED FOR UNKNOWN INDICATION
     Dosage: OM, DOSAGE FORM: UNSPECIFIED (EVERY MORNING)
     Route: 065
  9. VELCADE [Suspect]
     Active Substance: BORTEZOMIB
     Indication: PLASMA CELL LEUKAEMIA
     Dosage: VMP REGIMEN; LYOPHILIZED POWDER, CYCLE 1, ON DAYS 1, 4, 8, 11, 22, 25, 29, 32; CYCLICAL (INCOMPLETE)
     Route: 065
  10. VELCADE [Suspect]
     Active Substance: BORTEZOMIB
     Dosage: VMP REGIMEN, DAY 1 OF CYCLE 2, DOSE ALSO REPORTED AS 2 MG, COMPOUNDED WITH SODIUM CHLORIDE ; CYCL.
     Route: 065
     Dates: start: 20171103, end: 20171103
  11. PREDNISONE. [Suspect]
     Active Substance: PREDNISONE
     Indication: PLASMA CELL LEUKAEMIA
     Dosage: DOSAGE FORM: UNSPECIFIED
     Route: 065
  12. OMEPRAZOLE. [Concomitant]
     Active Substance: OMEPRAZOLE
     Indication: PRODUCT USED FOR UNKNOWN INDICATION
     Dosage: OM, DOSAGE FORM: UNSPECIFIED (EVERY MORNING)
     Route: 065
  13. VELCADE [Suspect]
     Active Substance: BORTEZOMIB
     Dosage: VMP REGIMEN, DAY 4 OF CYCLE 2, DOSE ALSO REPORTED AS 2 MG, COMPOUNDED WITH SODIUM CHLORIDE ; CYCL.
     Route: 065
     Dates: start: 20171106, end: 20171106
  14. MELPHALAN. [Suspect]
     Active Substance: MELPHALAN
     Indication: PLASMA CELL LEUKAEMIA
     Dosage: CYCLE 1, VMP REGIMEN (1) ; CYCLICAL, DOSAGE FORM: UNSPECIFIED
     Route: 065
  15. PREDNISOLONE. [Suspect]
     Active Substance: PREDNISOLONE
     Indication: PLASMA CELL LEUKAEMIA
     Dosage: CYCLE 1, VMP REGIMEN (1) ; CYCLICAL
     Route: 065
  16. MELPHALAN. [Suspect]
     Active Substance: MELPHALAN
     Dosage: DOSAGE FORM: UNSPECIFIED
     Route: 065
     Dates: start: 20171107, end: 20171110
  17. PREDNISOLONE. [Suspect]
     Active Substance: PREDNISOLONE
     Indication: PLASMA CELL LEUKAEMIA
     Dosage: VMP REGIMEN, DAY 1 TO 4, CYCLE 2
     Route: 065
     Dates: start: 20171103, end: 20171106
  18. RAMIPRIL. [Concomitant]
     Active Substance: RAMIPRIL
     Indication: PRODUCT USED FOR UNKNOWN INDICATION
     Dosage: OM, DOSAGE FORM: UNSPECIFIED (EVERY MORNING)
     Route: 065
  19. SODIUM CHLORIDE. [Suspect]
     Active Substance: SODIUM CHLORIDE
     Indication: MEDICATION DILUTION
     Dosage: DAY 1 OF CYCLE 2, VMP REGIMEN, COMPOUNDED WITH BORTEZOMIB (1); CYCLICAL
     Route: 065
     Dates: start: 20171103, end: 20171103
  20. ALLOPURINOL. [Suspect]
     Active Substance: ALLOPURINOL
     Dosage: DOSAGE FORM: UNSPECIFIED
     Route: 065
     Dates: start: 20171120
  21. MELPHALAN. [Suspect]
     Active Substance: MELPHALAN
     Dosage: VMP REGIMEN, DAY 1 TO 4, CYCLE 2
     Route: 065
     Dates: start: 20171103, end: 20171106
  22. PREDNISONE. [Suspect]
     Active Substance: PREDNISONE
     Dosage: DOSAGE FORM: UNSPECIFIED
     Route: 065
     Dates: start: 20171103, end: 20171106
  23. METOCLOPRAMIDE. [Concomitant]
     Active Substance: METOCLOPRAMIDE
     Indication: PRODUCT USED FOR UNKNOWN INDICATION
     Dosage: QDS PRN, DOSAGE FORM: UNSPECIFIED, AS NECESSARY
     Route: 065
  24. DEXAMETHASONE. [Suspect]
     Active Substance: DEXAMETHASONE
     Indication: PRODUCT USED FOR UNKNOWN INDICATION
     Dosage: DOSAGE FORM: UNSPECIFIED
     Route: 065
     Dates: start: 20171102, end: 20171106
  25. SODIUM CHLORIDE. [Suspect]
     Active Substance: SODIUM CHLORIDE
     Dosage: DAY 8 OF CYCLE 2, VMP REGIMEN, COMPOUNDED WITH BORTEZOMIB (1) ; CYCLICAL
     Route: 041
     Dates: start: 20171110, end: 20171114
  26. VELCADE [Suspect]
     Active Substance: BORTEZOMIB
     Dosage: VMP REGIMEN, DAY 8 OF CYCLE 2, DOSE ALSO REPORTED AS 2 MG, COMPOUNDED WITH SODIUM CHLORIDE ; CYCL.
     Route: 065
     Dates: start: 20171110, end: 20171110
  27. ALLOPURINOL. [Suspect]
     Active Substance: ALLOPURINOL
     Indication: PRODUCT USED FOR UNKNOWN INDICATION
     Dosage: DOSAGE FORM: UNSPECIFIED
     Route: 065
     Dates: start: 20171104, end: 20171120
  28. SERTRALINE [Concomitant]
     Active Substance: SERTRALINE HYDROCHLORIDE
     Indication: PRODUCT USED FOR UNKNOWN INDICATION
     Dosage: OM, DOSAGE FORM: UNSPECIFIED (EVERY MORNING)
     Route: 065

REACTIONS (10)
  - Emotional distress [Not Recovered/Not Resolved]
  - Product use in unapproved indication [Unknown]
  - Disturbance in social behaviour [Recovered/Resolved]
  - Abnormal behaviour [Recovered/Resolved]
  - Agitation [Recovered/Resolved]
  - Disorientation [Recovered/Resolved]
  - Hallucination [Recovered/Resolved]
  - Confusional state [Recovered/Resolved]
  - Paranoia [Recovered/Resolved]
  - Off label use [Unknown]

NARRATIVE: CASE EVENT DATE: 20171107
